FAERS Safety Report 11335491 (Version 1)
Quarter: 2015Q3

REPORT INFORMATION
  Report Type: Spontaneous
  Country: US (occurrence: US)
  Receive Date: 20150804
  Receipt Date: 20150804
  Transmission Date: 20151125
  Serious: Yes (Other)
  Sender: FDA-Public Use
  Company Number: US-TEVA-582599USA

PATIENT
  Age: 21 Year
  Sex: Female
  Weight: 90.8 kg

DRUGS (1)
  1. QVAR [Suspect]
     Active Substance: BECLOMETHASONE DIPROPIONATE
     Indication: ASTHMA EXERCISE INDUCED

REACTIONS (6)
  - Asthma [Unknown]
  - Umbilical hernia [Unknown]
  - Ligament rupture [Unknown]
  - Staphylococcal infection [Unknown]
  - Suicidal ideation [Unknown]
  - Expired product administered [Unknown]

NARRATIVE: CASE EVENT DATE: 2011
